FAERS Safety Report 18039240 (Version 1)
Quarter: 2020Q3

REPORT INFORMATION
  Report Type: Spontaneous
  Country: FR (occurrence: FR)
  Receive Date: 20200718
  Receipt Date: 20200718
  Transmission Date: 20201103
  Serious: Yes (Hospitalization, Other)
  Sender: FDA-Public Use
  Company Number: FR-CADILA HEALTHCARE LIMITED-FR-ZYDUS-030533

PATIENT

DRUGS (9)
  1. ABILIFY [Suspect]
     Active Substance: ARIPIPRAZOLE
     Indication: SCHIZOAFFECTIVE DISORDER
  2. ABILIFY [Suspect]
     Active Substance: ARIPIPRAZOLE
     Indication: BEHAVIOUR DISORDER
  3. ABILIFY [Suspect]
     Active Substance: ARIPIPRAZOLE
     Indication: SCHIZOPHRENIA
     Dosage: 400 MILLIGRAM,400 MG, QM, MONTHLY,(INTERVAL :1 MONTHS)
     Route: 030
     Dates: start: 201504
  4. LOXAPAC [Concomitant]
     Active Substance: LOXAPINE
     Indication: PRODUCT USED FOR UNKNOWN INDICATION
     Dosage: UNK ()
     Route: 065
  5. ARIPIPRAZOLE. [Suspect]
     Active Substance: ARIPIPRAZOLE
     Indication: SCHIZOPHRENIA
     Dosage: 20 MILLIGRAM,20 MG, UNK
     Route: 048
     Dates: start: 201111, end: 201602
  6. ABILIFY [Suspect]
     Active Substance: ARIPIPRAZOLE
     Indication: IMPULSIVE BEHAVIOUR
  7. VALIUM [Concomitant]
     Active Substance: DIAZEPAM
     Indication: SCHIZOPHRENIA
     Dosage: 20 MILLIGRAM,20 MG, UNK
     Route: 048
     Dates: start: 201501, end: 2015
  8. ARIPIPRAZOLE. [Suspect]
     Active Substance: ARIPIPRAZOLE
     Indication: SCHIZOAFFECTIVE DISORDER
  9. SERTRALINE [Concomitant]
     Active Substance: SERTRALINE HYDROCHLORIDE
     Indication: DEPRESSION
     Dosage: 100 MILLIGRAM,100 MG, UNK
     Route: 048
     Dates: start: 2013, end: 201509

REACTIONS (23)
  - Delirium [Not Recovered/Not Resolved]
  - No adverse event [Unknown]
  - Libido disorder [Recovered/Resolved]
  - Product dose omission issue [Unknown]
  - Extrapyramidal disorder [Unknown]
  - Adverse event [Unknown]
  - Treatment noncompliance [Unknown]
  - Muscle contractions involuntary [Unknown]
  - Dystonia [Unknown]
  - Drug ineffective [Unknown]
  - Akathisia [Unknown]
  - Suicide attempt [Not Recovered/Not Resolved]
  - Drug monitoring procedure not performed [Unknown]
  - Trismus [Unknown]
  - Weight increased [Recovered/Resolved]
  - Injection site pain [Unknown]
  - Off label use [Unknown]
  - Visual impairment [Unknown]
  - Anxiety [Unknown]
  - Hallucination [Not Recovered/Not Resolved]
  - Sedation [Unknown]
  - Schizophrenia [Recovered/Resolved]
  - Therapeutic product effect incomplete [Recovered/Resolved]

NARRATIVE: CASE EVENT DATE: 201506
